FAERS Safety Report 7479363-9 (Version None)
Quarter: 2011Q2

REPORT INFORMATION
  Report Type: 
  Country: None (occurrence: None)
  Receive Date: 20110513
  Receipt Date: 20110510
  Transmission Date: 20111010
  Serious: Yes (Death, Hospitalization)
  Sender: FDA-Public Use
  Company Number: US-CEPHALON-2011000151

PATIENT
  Sex: Male
  Weight: 10 kg

DRUGS (2)
  1. TREANDA [Suspect]
     Indication: ACUTE LYMPHOCYTIC LEUKAEMIA
     Route: 041
     Dates: start: 20101208, end: 20101209
  2. TREANDA [Suspect]
     Route: 041
     Dates: start: 20110106, end: 20110107

REACTIONS (4)
  - FEBRILE NEUTROPENIA [None]
  - SEPTIC SHOCK [None]
  - ACUTE LYMPHOCYTIC LEUKAEMIA [None]
  - CARDIOPULMONARY FAILURE [None]
